FAERS Safety Report 13332239 (Version 1)
Quarter: 2017Q1

REPORT INFORMATION
  Report Type: Spontaneous
  Country: US (occurrence: US)
  Receive Date: 20170314
  Receipt Date: 20170314
  Transmission Date: 20170428
  Serious: No
  Sender: FDA-Public Use
  Company Number: US-JNJFOC-20170227456

PATIENT
  Age: 68 Year
  Sex: Male
  Weight: 69.4 kg

DRUGS (1)
  1. TYLENOL EXTRA STRENGTH [Suspect]
     Active Substance: ACETAMINOPHEN
     Indication: SINUS HEADACHE
     Dosage: 2-3X PER DAY
     Route: 048

REACTIONS (1)
  - Anaemia [Not Recovered/Not Resolved]
